FAERS Safety Report 23512824 (Version 1)
Quarter: 2024Q1

REPORT INFORMATION
  Report Type: Spontaneous
  Country: US (occurrence: US)
  Receive Date: 20240212
  Receipt Date: 20240212
  Transmission Date: 20240409
  Serious: No
  Sender: FDA-Public Use
  Company Number: US-ALCON LABORATORIES-ALC2023US005670

PATIENT
  Sex: Male

DRUGS (5)
  1. RHOPRESSA [Suspect]
     Active Substance: NETARSUDIL MESYLATE
     Dosage: 1 DROP IN EACH EYE, DURING NIGHT TIME
     Route: 047
     Dates: start: 20230909, end: 202310
  2. RHOPRESSA [Suspect]
     Active Substance: NETARSUDIL MESYLATE
     Indication: Product used for unknown indication
     Dosage: 1 DROP IN EACH EYE, DURING NIGHT TIME
     Route: 047
     Dates: start: 202308, end: 202309
  3. BRIMONIDINE TARTRATE [Concomitant]
     Active Substance: BRIMONIDINE TARTRATE
     Indication: Product used for unknown indication
     Dosage: UNK
     Route: 047
  4. DORZOLAMIDE HYDROCHLORIDE [Concomitant]
     Active Substance: DORZOLAMIDE HYDROCHLORIDE
     Indication: Product used for unknown indication
     Dosage: UNK
     Route: 047
  5. LATANOPROST [Concomitant]
     Active Substance: LATANOPROST
     Indication: Product used for unknown indication
     Dosage: UNK
     Route: 047

REACTIONS (5)
  - Eye irritation [Recovering/Resolving]
  - Visual impairment [Recovering/Resolving]
  - Eye pain [Recovering/Resolving]
  - Lacrimation increased [Recovering/Resolving]
  - Visual acuity reduced [Recovering/Resolving]
